FAERS Safety Report 6077933-6 (Version None)
Quarter: 2009Q1

REPORT INFORMATION
  Report Type: 
  Country: None (occurrence: None)
  Receive Date: 20090213
  Receipt Date: 20090205
  Transmission Date: 20090719
  Serious: Yes (Other)
  Sender: FDA-Public Use
  Company Number: DE-ROCHE-609989

PATIENT
  Sex: Male
  Weight: 85 kg

DRUGS (8)
  1. XELODA [Suspect]
     Route: 048
     Dates: start: 20090108, end: 20090113
  2. XELODA [Suspect]
     Route: 048
     Dates: end: 20080101
  3. AVASTIN [Suspect]
     Dosage: 637 PER DAY (NO UNIT PROVIDED)
     Route: 042
     Dates: start: 20090108, end: 20090108
  4. AVASTIN [Suspect]
     Route: 042
     Dates: end: 20080101
  5. OXALIPLATIN [Concomitant]
     Dosage: 260 PER DAY (NO UNITS PROVIDED)
     Route: 042
     Dates: start: 20090108, end: 20090108
  6. OXALIPLATIN [Concomitant]
     Route: 042
     Dates: end: 20080101
  7. BISOPROLOL [Concomitant]
     Route: 048
  8. CANDESARTAN [Concomitant]
     Route: 048

REACTIONS (2)
  - CEREBRAL INFARCTION [None]
  - PALMAR-PLANTAR ERYTHRODYSAESTHESIA SYNDROME [None]
